FAERS Safety Report 8948156 (Version 1)
Quarter: 2012Q4

REPORT INFORMATION
  Report Type: 
  Country: US (occurrence: US)
  Receive Date: 20121204
  Receipt Date: 20121204
  Transmission Date: 20130627
  Serious: Yes (Other)
  Sender: FDA-Public Use
  Company Number: US-PFIZER INC-2012300692

PATIENT
  Age: 25 Year
  Sex: Male

DRUGS (8)
  1. LEVETIRACETAM [Suspect]
     Indication: SEIZURES
     Dosage: UNK
  2. LAMOTRIGINE [Suspect]
     Indication: SEIZURES
  3. PHENYTOIN [Suspect]
     Indication: SEIZURE
  4. TOPIRAMATE [Suspect]
     Indication: SEIZURES
  5. FELBAMATE [Suspect]
     Indication: SEIZURES
  6. ZONISAMIDE [Suspect]
     Indication: SEIZURES
  7. RUFINAMIDE [Suspect]
     Indication: SEIZURES
  8. LORAZEPAM [Suspect]
     Indication: SEIZURES

REACTIONS (3)
  - Aggression [Unknown]
  - Drug ineffective [Unknown]
  - Off label use [Unknown]
